FAERS Safety Report 4341642-1 (Version None)
Quarter: 2004Q2

REPORT INFORMATION
  Report Type: 
  Country: None (occurrence: None)
  Receive Date: 20040420
  Receipt Date: 20040308
  Transmission Date: 20050107
  Serious: Yes (Other)
  Sender: FDA-Public Use
  Company Number: JP-ROCHE-361746

PATIENT
  Age: 27 Year
  Sex: Female
  Weight: 45 kg

DRUGS (3)
  1. TAMIFLU [Suspect]
     Route: 048
     Dates: start: 20040228, end: 20040229
  2. CLARITIN [Concomitant]
     Route: 048
  3. ACETAMINOPHEN [Concomitant]
     Route: 048

REACTIONS (1)
  - MELAENA [None]
